FAERS Safety Report 17820388 (Version 1)
Quarter: 2020Q2

REPORT INFORMATION
  Report Type: Report from Study
  Country: None (occurrence: TR)
  Receive Date: 20200525
  Receipt Date: 20200525
  Transmission Date: 20200714
  Serious: Yes (Other)
  Sender: FDA-Public Use
  Company Number: TR-ABBVIE-20K-161-3414945-00

PATIENT
  Age: 52 Year
  Sex: Male

DRUGS (1)
  1. DUODOPA [Suspect]
     Active Substance: CARBIDOPA\LEVODOPA
     Indication: PARKINSON^S DISEASE
     Dosage: MORNING DOSE (ML): 4.30 CONTINUOUS  DOSE (ML): 2.40 EXTRA DOSE (ML): 1.50
     Route: 050
     Dates: start: 20151020

REACTIONS (4)
  - Syncope [Recovered/Resolved]
  - Aspiration [Recovered/Resolved]
  - Foreign body in respiratory tract [Unknown]
  - Fall [Recovered/Resolved]

NARRATIVE: CASE EVENT DATE: 20200518
